FAERS Safety Report 8553178-2 (Version None)
Quarter: 2012Q3

REPORT INFORMATION
  Report Type: 
  Country: None (occurrence: None)
  Receive Date: 20120731
  Receipt Date: 20120720
  Transmission Date: 20120928
  Serious: Yes (Life-Threatening, Hospitalization, Other)
  Sender: FDA-Public Use
  Company Number: US-BAYER-2012-017004

PATIENT
  Age: 32 Year
  Sex: Female
  Weight: 77.098 kg

DRUGS (4)
  1. YASMIN [Suspect]
  2. DROSPIRENONE AND ETHINYL ESTRADIOL [Suspect]
  3. YAZ [Suspect]
  4. PROPYL-THIOURACIL [Concomitant]

REACTIONS (17)
  - TRANSVERSE SINUS THROMBOSIS [None]
  - THROMBOPHLEBITIS [None]
  - ANHEDONIA [None]
  - HAEMORRHAGE INTRACRANIAL [None]
  - MIGRAINE [None]
  - CEREBROVASCULAR ACCIDENT [None]
  - EMBOLISM VENOUS [None]
  - HEADACHE [None]
  - INJURY [None]
  - GENERAL PHYSICAL HEALTH DETERIORATION [None]
  - THYROTOXIC CRISIS [None]
  - GOITRE [None]
  - ANXIETY [None]
  - HYPERCOAGULATION [None]
  - ANXIETY DISORDER [None]
  - PAIN [None]
  - EMOTIONAL DISTRESS [None]
